FAERS Safety Report 6612613-7 (Version None)
Quarter: 2010Q1

REPORT INFORMATION
  Report Type: 
  Country: None (occurrence: None)
  Receive Date: 20100223
  Receipt Date: 20100203
  Transmission Date: 20100710
  Serious: Yes (Life-Threatening, Hospitalization)
  Sender: FDA-Public Use
  Company Number: AUR-APL-2010-00436

PATIENT
  Age: 78 Year
  Sex: Male
  Weight: 90 kg

DRUGS (4)
  1. TORSEMIDE [Suspect]
     Indication: HYPERTENSION
     Dosage: ORAL
     Route: 048
     Dates: end: 20090415
  2. TAMSULOSIN 0.4MG RETARD CAPSULE [Suspect]
     Indication: BENIGN PROSTATIC HYPERPLASIA
     Dosage: 0.4MG, ORAL
     Route: 048
     Dates: end: 20090415
  3. PHENPROCOUMON (FALITHROM) [Suspect]
     Indication: CARDIAC FIBRILLATION
     Dosage: 3-9MG-DAILY-ORAL
     Route: 048
     Dates: end: 20090415
  4. VALSARTAN  AND HYDROCHLOROTHIAZIDE [Suspect]
     Indication: HYPERTENSION
     Dosage: 1DF-DAILY-ORAL
     Route: 048
     Dates: end: 20090415

REACTIONS (4)
  - GALLBLADDER NON-FUNCTIONING [None]
  - HYPERHIDROSIS [None]
  - LIVER DISORDER [None]
  - OEDEMATOUS PANCREATITIS [None]
